FAERS Safety Report 20564926 (Version 1)
Quarter: 2022Q1

REPORT INFORMATION
  Report Type: Report from Study
  Country: US (occurrence: None)
  Receive Date: 20220308
  Receipt Date: 20220308
  Transmission Date: 20220423
  Serious: Yes (Other)
  Sender: FDA-Public Use
  Company Number: 2022A092165

PATIENT
  Sex: Female

DRUGS (2)
  1. LYNPARZA [Suspect]
     Active Substance: OLAPARIB
     Indication: Ovarian cancer
     Route: 048
  2. MINOXIDIL [Concomitant]
     Active Substance: MINOXIDIL

REACTIONS (8)
  - Squamous cell carcinoma of the oral cavity [Unknown]
  - Abdominal discomfort [Unknown]
  - Alopecia [Unknown]
  - Feeling hot [Unknown]
  - Erythema [Unknown]
  - Dyspepsia [Unknown]
  - Dyspnoea [Unknown]
  - SARS-CoV-2 test negative [Unknown]
